FAERS Safety Report 21459093 (Version 3)
Quarter: 2022Q4

REPORT INFORMATION
  Report Type: Spontaneous
  Country: JP (occurrence: JP)
  Receive Date: 20221014
  Receipt Date: 20221216
  Transmission Date: 20230113
  Serious: Yes (Death, Hospitalization, Other)
  Sender: FDA-Public Use
  Company Number: JP-OTSUKA-2022_048216

PATIENT
  Age: 81 Year
  Sex: Male

DRUGS (1)
  1. SAMSCA [Suspect]
     Active Substance: TOLVAPTAN
     Indication: Cardiac failure
     Dosage: 7.5MG/DAY, UNK
     Route: 048
     Dates: start: 20220915, end: 20220926

REACTIONS (4)
  - Hepatic function abnormal [Fatal]
  - Hypernatraemia [Fatal]
  - Dehydration [Fatal]
  - Loss of consciousness [Unknown]

NARRATIVE: CASE EVENT DATE: 20220926
